FAERS Safety Report 22124208 (Version 1)
Quarter: 2023Q1

REPORT INFORMATION
  Report Type: Spontaneous
  Country: US (occurrence: None)
  Receive Date: 20230321
  Receipt Date: 20230321
  Transmission Date: 20230418
  Serious: No
  Sender: FDA-Public Use
  Company Number: None

PATIENT
  Age: 10 Year
  Sex: Male
  Weight: 28.8 kg

DRUGS (1)
  1. CALASPARGASE PEGOL [Suspect]
     Active Substance: CALASPARGASE PEGOL

REACTIONS (6)
  - Nausea [None]
  - Infusion related reaction [None]
  - Vomiting [None]
  - Pruritus [None]
  - Urticaria [None]
  - Heart rate increased [None]

NARRATIVE: CASE EVENT DATE: 20230315
